FAERS Safety Report 21938016 (Version 1)
Quarter: 2023Q1

REPORT INFORMATION
  Report Type: Spontaneous
  Country: US (occurrence: None)
  Receive Date: 20230201
  Receipt Date: 20230201
  Transmission Date: 20230418
  Serious: Yes (unspecified)
  Sender: FDA-Public Use
  Company Number: None

PATIENT
  Age: 11 Year
  Sex: Male
  Weight: 34.65 kg

DRUGS (3)
  1. ARIPIPRAZOLE [Suspect]
     Active Substance: ARIPIPRAZOLE
     Indication: Attention deficit hyperactivity disorder
     Dosage: OTHER QUANTITY : 1 TABLET(S);?FREQUENCY : AT BEDTIME;?
     Route: 048
     Dates: start: 20221129, end: 20230201
  2. Journay 20 MG at bed time [Concomitant]
  3. Abilify 5MG at bed time [Concomitant]

REACTIONS (3)
  - Product substitution issue [None]
  - Drug effect less than expected [None]
  - Aggression [None]

NARRATIVE: CASE EVENT DATE: 20230112
